FAERS Safety Report 23152881 (Version 1)
Quarter: 2023Q4

REPORT INFORMATION
  Report Type: Spontaneous
  Country: MY (occurrence: None)
  Receive Date: 20231107
  Receipt Date: 20231107
  Transmission Date: 20240109
  Serious: Yes (Life-Threatening, Hospitalization, Other)
  Sender: FDA-Public Use
  Company Number: MY-MICRO LABS LIMITED-ML2023-06258

PATIENT
  Age: 82 Year
  Sex: Female

DRUGS (2)
  1. METFORMIN [Suspect]
     Active Substance: METFORMIN HYDROCHLORIDE
     Indication: Type 2 diabetes mellitus
     Dosage: TABLET METFORMIN 1 G TWICE DAILY
  2. GLICLAZIDE. [Concomitant]
     Indication: Type 2 diabetes mellitus
     Dosage: 120 MG ONCE DAILY

REACTIONS (3)
  - Septic shock [Recovered/Resolved]
  - Metabolic acidosis [Recovered/Resolved]
  - Lactic acidosis [Recovered/Resolved]
